FAERS Safety Report 7228584-9 (Version None)
Quarter: 2011Q1

REPORT INFORMATION
  Report Type: 
  Country: None (occurrence: None)
  Receive Date: 20110117
  Receipt Date: 20110106
  Transmission Date: 20110831
  Serious: No
  Sender: FDA-Public Use
  Company Number: US-BIOGENIDEC-2010BI032421

PATIENT
  Sex: Female

DRUGS (1)
  1. TYSABRI [Suspect]
     Indication: MULTIPLE SCLEROSIS
     Route: 042
     Dates: start: 20091217

REACTIONS (11)
  - LOSS OF CONSCIOUSNESS [None]
  - TREMOR [None]
  - DEPRESSION [None]
  - BALANCE DISORDER [None]
  - FALL [None]
  - HEAD INJURY [None]
  - COORDINATION ABNORMAL [None]
  - LOSS OF CONTROL OF LEGS [None]
  - MUSCULAR WEAKNESS [None]
  - NASOPHARYNGITIS [None]
  - ASTHENIA [None]
